FAERS Safety Report 23545453 (Version 5)
Quarter: 2024Q1

REPORT INFORMATION
  Report Type: Spontaneous
  Country: US (occurrence: US)
  Receive Date: 20240220
  Receipt Date: 20240318
  Transmission Date: 20240409
  Serious: Yes (Death, Hospitalization, Other)
  Sender: FDA-Public Use
  Company Number: US-PFIZER INC-202400042672

PATIENT
  Age: 83 Year
  Sex: Female
  Weight: 94.2 kg

DRUGS (7)
  1. RETACRIT [Suspect]
     Active Substance: EPOETIN ALFA-EPBX
     Indication: Anaemia
     Dosage: 40,000 UNITS SUBQ
     Route: 058
     Dates: start: 20240212
  2. ELIQUIS [Suspect]
     Active Substance: APIXABAN
     Dosage: UNK
  3. FERRITIN [Concomitant]
     Active Substance: FERRITIN
     Dosage: 125 MG (X1 DOSE)
     Route: 042
  4. FERRALET [FERROUS GLUCONATE] [Concomitant]
     Dosage: 125 MG X 1 DOSE
     Route: 042
  5. TRANEXAMIC ACID [Concomitant]
     Active Substance: TRANEXAMIC ACID
     Dosage: 1 G X1 DOSE
  6. NOREPINEPHRINE [Concomitant]
     Active Substance: NOREPINEPHRINE\NOREPINEPHRINE BITARTRATE
     Dosage: 4MG/250 ML
  7. VASOPRESSIN [Concomitant]
     Active Substance: VASOPRESSIN
     Dosage: UNK

REACTIONS (4)
  - Cardiac arrest [Fatal]
  - Therapeutic product effect delayed [Fatal]
  - International normalised ratio increased [Fatal]
  - Disease progression [Fatal]

NARRATIVE: CASE EVENT DATE: 20240212
